FAERS Safety Report 14892603 (Version 2)
Quarter: 2018Q2

REPORT INFORMATION
  Report Type: Spontaneous
  Country: US (occurrence: US)
  Receive Date: 20180514
  Receipt Date: 20180612
  Transmission Date: 20180711
  Serious: No
  Sender: FDA-Public Use
  Company Number: US-GLAXOSMITHKLINE-US2018080739

PATIENT
  Sex: Male

DRUGS (3)
  1. AVODART [Suspect]
     Active Substance: DUTASTERIDE
     Indication: PRODUCT USED FOR UNKNOWN INDICATION
     Dosage: UNK UNK, U
     Dates: start: 2017, end: 201706
  2. ATIVAN [Concomitant]
     Active Substance: LORAZEPAM
  3. CELEXA [Concomitant]
     Active Substance: CITALOPRAM HYDROBROMIDE

REACTIONS (7)
  - Cognitive disorder [Recovering/Resolving]
  - Depression [Recovering/Resolving]
  - Underdose [Unknown]
  - Aphasia [Recovering/Resolving]
  - Headache [Recovering/Resolving]
  - Feeling abnormal [Recovering/Resolving]
  - Depersonalisation/derealisation disorder [Recovering/Resolving]
